FAERS Safety Report 7313630-4 (Version None)
Quarter: 2011Q1

REPORT INFORMATION
  Report Type: 
  Country: None (occurrence: None)
  Receive Date: 20110224
  Receipt Date: 20110224
  Transmission Date: 20110831
  Serious: Yes (Life-Threatening)
  Sender: FDA-Public Use
  Company Number: None

PATIENT
  Sex: Female
  Weight: 45.3597 kg

DRUGS (3)
  1. TRIAD ALCOHOL PREP PADS [Suspect]
  2. ALCOHOL SWABSTICKS [Suspect]
  3. ALCOHOL SWABS [Suspect]

REACTIONS (6)
  - PYREXIA [None]
  - MUSCULAR WEAKNESS [None]
  - VOMITING [None]
  - INJECTION SITE INFECTION [None]
  - INJECTION SITE PAIN [None]
  - NAUSEA [None]
